FAERS Safety Report 20718839 (Version 2)
Quarter: 2024Q3

REPORT INFORMATION
  Report Type: Spontaneous
  Country: PL (occurrence: PL)
  Receive Date: 20220418
  Receipt Date: 20240717
  Transmission Date: 20241016
  Serious: Yes (Other)
  Sender: TEVA
  Company Number: PL-TEVA-2022-PL-2027519

PATIENT
  Age: 31 Year
  Sex: Male

DRUGS (18)
  1. DICLOFENAC [Suspect]
     Active Substance: DICLOFENAC
     Route: 065
  2. AGOMELATINE [Concomitant]
     Active Substance: AGOMELATINE
  3. ATORVASTATIN [Interacting]
     Active Substance: ATORVASTATIN
     Route: 065
  4. ACETAMINOPHEN\TRAMADOL [Suspect]
     Active Substance: ACETAMINOPHEN\TRAMADOL
     Dosage: DOSAGE TEXT: AT A DOSE OF 37.5 / 325 MG TWICE A DAY
     Route: 065
  5. SERTRALINE [Suspect]
     Active Substance: SERTRALINE HYDROCHLORIDE
     Route: 065
  6. TADALAFIL [Suspect]
     Active Substance: TADALAFIL
     Dosage: DOSAGE TEXT: TO BE TAKEN ON DEMAND (AS NEEDED)
     Route: 065
  7. ALPRAZOLAM [Interacting]
     Active Substance: ALPRAZOLAM
     Indication: Insomnia
     Route: 065
  8. BUPRENORPHINE [Concomitant]
     Active Substance: BUPRENORPHINE
     Indication: Back pain
     Route: 060
  9. BUPRENORPHINE [Concomitant]
     Active Substance: BUPRENORPHINE
     Indication: Back pain
     Route: 062
  10. FUROSEMIDE [Concomitant]
     Active Substance: FUROSEMIDE
     Indication: Cardiac disorder
     Route: 042
  11. KETAMINE [Concomitant]
     Active Substance: KETAMINE
     Indication: Back pain
     Route: 042
  12. KETOPROFEN [Concomitant]
     Active Substance: KETOPROFEN
     Indication: Back pain
     Route: 042
  13. LORNOXICAM [Concomitant]
     Active Substance: LORNOXICAM
     Indication: Back pain
     Route: 048
  14. MAGNESIUM SULFATE [Concomitant]
     Active Substance: MAGNESIUM SULFATE\MAGNESIUM SULFATE HEPTAHYDRATE
     Indication: Back pain
  15. METOPROLOL [Concomitant]
     Active Substance: METOPROLOL
     Indication: Cardiac disorder
  16. MORPHINE [Concomitant]
     Active Substance: MORPHINE
     Indication: Back pain
     Route: 042
  17. RAMIPRIL [Concomitant]
     Active Substance: RAMIPRIL
     Indication: Product used for unknown indication
  18. VALPROATE SODIUM [Concomitant]
     Active Substance: VALPROATE SODIUM
     Indication: Back pain

REACTIONS (10)
  - Erectile dysfunction [Recovered/Resolved]
  - Drug interaction [Unknown]
  - Drug ineffective [Unknown]
  - Pain [Recovered/Resolved]
  - Hyperaesthesia [Recovered/Resolved]
  - Anorgasmia [Recovered/Resolved]
  - Blood pressure increased [Unknown]
  - Tachycardia [Unknown]
  - Tachypnoea [Unknown]
  - Therapy non-responder [Unknown]
